FAERS Safety Report 21968431 (Version 14)
Quarter: 2024Q1

REPORT INFORMATION
  Report Type: Spontaneous
  Country: US (occurrence: US)
  Receive Date: 20230208
  Receipt Date: 20240116
  Transmission Date: 20240410
  Serious: No
  Sender: FDA-Public Use
  Company Number: US-002147023-NVSC2023US027188

PATIENT
  Age: 21 Year
  Sex: Female

DRUGS (11)
  1. PROMACTA [Suspect]
     Active Substance: ELTROMBOPAG OLAMINE
     Indication: Pulmonary arterial hypertension
     Dosage: 12.5 MG, QD
     Route: 048
     Dates: start: 202301
  2. PROMACTA [Suspect]
     Active Substance: ELTROMBOPAG OLAMINE
     Indication: End stage renal disease
     Dosage: 32 UG, QID (2 DAYS AGO)
     Route: 048
  3. PROMACTA [Suspect]
     Active Substance: ELTROMBOPAG OLAMINE
     Indication: Immune thrombocytopenia
     Dosage: 64 UNK (64MCG DOSES ON 2 OF THE 4 TREATMENTS DAILY)
     Route: 065
  4. PROMACTA [Suspect]
     Active Substance: ELTROMBOPAG OLAMINE
     Dosage: 48 UNK, QD (48MCG QID)
     Route: 065
  5. UPTRAVI [Concomitant]
     Active Substance: SELEXIPAG
     Indication: Product used for unknown indication
     Dosage: UNK
     Route: 065
  6. SILDENAFIL CITRATE [Concomitant]
     Active Substance: SILDENAFIL CITRATE
     Indication: Product used for unknown indication
     Dosage: UNK
     Route: 065
  7. OPSUMIT [Concomitant]
     Active Substance: MACITENTAN
     Indication: Product used for unknown indication
     Dosage: UNK
     Route: 065
  8. TYVASO [Concomitant]
     Active Substance: TREPROSTINIL
     Indication: Product used for unknown indication
     Dosage: 32 UG (1 ST DOSE)
     Route: 065
  9. TYVASO [Concomitant]
     Active Substance: TREPROSTINIL
     Dosage: 32 UG (2 ND DOSE)
     Route: 065
  10. TYVASO [Concomitant]
     Active Substance: TREPROSTINIL
     Dosage: 48 UG (3 RD DOSE)
     Route: 065
  11. TYVASO [Concomitant]
     Active Substance: TREPROSTINIL
     Dosage: 48 UG (4 TH DOSE)
     Route: 065

REACTIONS (17)
  - General physical health deterioration [Unknown]
  - Gastrointestinal disorder [Unknown]
  - Liver disorder [Unknown]
  - Headache [Unknown]
  - Ocular hyperaemia [Unknown]
  - Menstrual disorder [Unknown]
  - Aneurysm [Unknown]
  - Somnolence [Unknown]
  - Oropharyngeal pain [Unknown]
  - Nasal congestion [Unknown]
  - Vomiting [Unknown]
  - Irregular breathing [Unknown]
  - Hypervolaemia [Unknown]
  - Product use in unapproved indication [Unknown]
  - Dyspnoea [Unknown]
  - Hypotension [Unknown]
  - Drug ineffective [Unknown]

NARRATIVE: CASE EVENT DATE: 20231007
